FAERS Safety Report 6530012-3 (Version None)
Quarter: 2010Q1

REPORT INFORMATION
  Report Type: 
  Country: None (occurrence: None)
  Receive Date: 20100107
  Receipt Date: 20100105
  Transmission Date: 20100710
  Serious: Yes (Hospitalization)
  Sender: FDA-Public Use
  Company Number: GXKR2010DE00457

PATIENT
  Age: 77 Year
  Sex: Female

DRUGS (2)
  1. SIMVASTATIN (NGX) [Suspect]
     Indication: HYPERLIPIDAEMIA
     Dosage: 40 MG, UNK
     Route: 048
     Dates: start: 20091101
  2. MADOPAR [Suspect]
     Indication: RESTLESS LEGS SYNDROME
     Dosage: 62.5 MG, UNK
     Route: 048

REACTIONS (2)
  - MONOPARESIS [None]
  - RHABDOMYOLYSIS [None]
